FAERS Safety Report 21846859 (Version 1)
Quarter: 2023Q1

REPORT INFORMATION
  Report Type: Spontaneous
  Country: US (occurrence: None)
  Receive Date: 20230110
  Receipt Date: 20230110
  Transmission Date: 20230417
  Serious: Yes (Hospitalization)
  Sender: FDA-Public Use
  Company Number: None

PATIENT
  Sex: Male
  Weight: 86.2 kg

DRUGS (1)
  1. RITUXIMAB [Suspect]
     Active Substance: RITUXIMAB
     Dates: end: 20221206

REACTIONS (8)
  - Headache [None]
  - Aphasia [None]
  - Paraesthesia [None]
  - Blood pressure abnormal [None]
  - Vertebrobasilar artery dissection [None]
  - Lacunar infarction [None]
  - White matter lesion [None]
  - Vertebral artery occlusion [None]

NARRATIVE: CASE EVENT DATE: 20221222
